FAERS Safety Report 4550247-9 (Version None)
Quarter: 2005Q1

REPORT INFORMATION
  Report Type: 
  Country: None (occurrence: None)
  Receive Date: 20050107
  Receipt Date: 20041228
  Transmission Date: 20050727
  Serious: Yes (Hospitalization)
  Sender: FDA-Public Use
  Company Number: HQWYE277729DEC04

PATIENT
  Age: 72 Year
  Sex: Male
  Weight: 87 kg

DRUGS (2)
  1. MYLOTARG [Suspect]
     Indication: ACUTE MYELOID LEUKAEMIA
     Dosage: 17 MG, INTRAVENOUS
     Route: 042
  2. CIPRO [Concomitant]

REACTIONS (3)
  - CHILLS [None]
  - PANCYTOPENIA [None]
  - PYREXIA [None]
